FAERS Safety Report 6118528-5 (Version None)
Quarter: 2009Q1

REPORT INFORMATION
  Report Type: 
  Country: None (occurrence: None)
  Receive Date: 20090314
  Receipt Date: 20090218
  Transmission Date: 20090719
  Serious: No
  Sender: FDA-Public Use
  Company Number: US-ABBOTT-09P-163-0558496-00

PATIENT
  Sex: Female

DRUGS (1)
  1. HUMIRA [Suspect]
     Indication: RHEUMATOID ARTHRITIS
     Dates: start: 20070719, end: 20090128

REACTIONS (4)
  - INFLUENZA [None]
  - PAIN [None]
  - RESPIRATORY TRACT CONGESTION [None]
  - THROAT TIGHTNESS [None]
